FAERS Safety Report 13496145 (Version 1)
Quarter: 2017Q2

REPORT INFORMATION
  Report Type: Report from Study
  Country: US (occurrence: US)
  Receive Date: 20170428
  Receipt Date: 20170428
  Transmission Date: 20170830
  Serious: Yes (Hospitalization)
  Sender: FDA-Public Use
  Company Number: US-BAYER-2017-074984

PATIENT
  Sex: Male

DRUGS (5)
  1. NEXAVAR [Suspect]
     Active Substance: SORAFENIB
     Indication: GASTRIC CANCER
     Dosage: 200 MG, BID
     Route: 048
     Dates: start: 20130919
  2. NEXAVAR [Suspect]
     Active Substance: SORAFENIB
     Indication: MALIGNANT CONNECTIVE TISSUE NEOPLASM
  3. NEXAVAR [Suspect]
     Active Substance: SORAFENIB
     Indication: COLON CANCER
  4. NEXAVAR [Suspect]
     Active Substance: SORAFENIB
     Indication: GASTRIC CANCER
  5. NEXAVAR [Suspect]
     Active Substance: SORAFENIB
     Indication: COLON CANCER

REACTIONS (2)
  - Hospitalisation [None]
  - Off label use [None]
